FAERS Safety Report 9572445 (Version 2)
Quarter: 2013Q4

REPORT INFORMATION
  Report Type: Spontaneous
  Country: IT (occurrence: IT)
  Receive Date: 20131001
  Receipt Date: 20131001
  Transmission Date: 20140711
  Serious: Yes (Other)
  Sender: FDA-Public Use
  Company Number: IT-PFIZER INC-2013230023

PATIENT
  Age: 57 Year
  Sex: Male
  Weight: 65 kg

DRUGS (9)
  1. ARACYTIN [Suspect]
     Indication: ACUTE MYELOID LEUKAEMIA
     Dosage: 100 MG/M2, 1X/DAY
     Route: 042
     Dates: start: 20130301, end: 20130310
  2. OMEPRAZOLE [Concomitant]
     Dosage: UNK
     Route: 048
  3. DAUNOBLASTINA [Concomitant]
     Indication: ACUTE MYELOID LEUKAEMIA
     Dosage: 50 MG/M2, UNK
     Route: 042
     Dates: start: 20130301, end: 20130305
  4. ETOPOSIDE-TEVA [Concomitant]
     Indication: ACUTE MYELOID LEUKAEMIA
     Dosage: 50 MG/M2, UNK
     Route: 042
     Dates: start: 20130301, end: 20130305
  5. EUTIROX [Concomitant]
     Indication: HYPOTHYROIDISM
     Dosage: UNK
     Route: 048
  6. NOVORAPID [Concomitant]
     Indication: DIABETES MELLITUS
     Dosage: UNK
  7. CIPROXIN [Concomitant]
     Dosage: UNK
  8. NOXAFIL [Concomitant]
     Dosage: UNK
     Route: 048
  9. TAZOCIN [Concomitant]
     Dosage: UNK
     Route: 042

REACTIONS (1)
  - Hepatitis toxic [Recovering/Resolving]
